FAERS Safety Report 7878241-0 (Version None)
Quarter: 2011Q4

REPORT INFORMATION
  Report Type: 
  Country: None (occurrence: None)
  Receive Date: 20111027
  Receipt Date: 20111013
  Transmission Date: 20120403
  Serious: Yes (Hospitalization)
  Sender: FDA-Public Use
  Company Number: DSA_47788_2011

PATIENT
  Age: 75 Year
  Sex: Male

DRUGS (8)
  1. CRESTOR [Concomitant]
  2. ENALAPRIL MALEATE [Suspect]
     Indication: HYPERTENSION
     Dosage: (20 MG QD ORAL)
     Route: 048
     Dates: start: 20080101
  3. ASPIRIN [Concomitant]
  4. INSULIN [Concomitant]
  5. GLIBOMET [Concomitant]
  6. NORVASC [Concomitant]
  7. OMEPRAZOLE [Concomitant]
  8. CARVEDILOL [Suspect]
     Indication: HYPERTENSION
     Dosage: (37.5 MG QD ORAL)
     Route: 048
     Dates: start: 20080101

REACTIONS (4)
  - HEAD INJURY [None]
  - ISCHAEMIA [None]
  - FALL [None]
  - PRESYNCOPE [None]
